FAERS Safety Report 7368422-7 (Version None)
Quarter: 2011Q1

REPORT INFORMATION
  Report Type: 
  Country: None (occurrence: None)
  Receive Date: 20110323
  Receipt Date: 20110309
  Transmission Date: 20110831
  Serious: Yes (Other)
  Sender: FDA-Public Use
  Company Number: CA-JNJFOC-20100707789

PATIENT
  Sex: Male
  Weight: 80 kg

DRUGS (11)
  1. ASPIRIN [Concomitant]
  2. DIOVAN [Concomitant]
  3. IMURAN [Concomitant]
  4. HUMALOG [Concomitant]
  5. CLONAZEPAM [Concomitant]
  6. REMICADE [Suspect]
     Indication: COLITIS ULCERATIVE
     Route: 042
  7. ASACOL [Concomitant]
  8. LIPITOR [Concomitant]
  9. SYMBICORT [Concomitant]
     Dosage: 2 PUFFS TWICE A DAY
  10. CHOLESTYRAMINE [Concomitant]
  11. INSULIN [Concomitant]

REACTIONS (2)
  - BURSITIS INFECTIVE [None]
  - CHRONIC OBSTRUCTIVE PULMONARY DISEASE [None]
